FAERS Safety Report 7227033-4 (Version None)
Quarter: 2011Q1

REPORT INFORMATION
  Report Type: 
  Country: None (occurrence: None)
  Receive Date: 20110114
  Receipt Date: 20110114
  Transmission Date: 20110831
  Serious: Yes (Death, Hospitalization, Other)
  Sender: FDA-Public Use
  Company Number: PHHO2008PL13242

PATIENT
  Sex: Male
  Weight: 86 kg

DRUGS (11)
  1. LENDACIN [Concomitant]
     Dosage: UNK
     Dates: start: 20090106
  2. NAPROXEN [Concomitant]
  3. STI571/CGP57148B [Suspect]
     Dosage: 600 MG, QD
     Route: 048
     Dates: start: 20081125, end: 20081201
  4. DASATINIB [Suspect]
     Dosage: UNK
     Dates: start: 20081204, end: 20081209
  5. CHEMOTHERAPEUTICS NOS [Suspect]
  6. STI571/CGP57148B [Suspect]
     Indication: CHRONIC MYELOID LEUKAEMIA
     Dosage: 800 MG, UNK
     Route: 048
     Dates: start: 20061114, end: 20081105
  7. STI571/CGP57148B [Suspect]
     Dosage: NO TREATMENT
     Dates: start: 20081106, end: 20081124
  8. FLUCONAZOLE [Concomitant]
     Dosage: UNK
     Dates: start: 20090113
  9. RENALGIN [Concomitant]
  10. UNIDOX [Concomitant]
  11. THIOCODIN [Concomitant]

REACTIONS (15)
  - CIRCULATORY COLLAPSE [None]
  - LEUKOPENIA [None]
  - THROMBOCYTOPENIA [None]
  - PNEUMONIA [None]
  - CHRONIC MYELOID LEUKAEMIA [None]
  - HERPES SIMPLEX [None]
  - RESPIRATORY FAILURE [None]
  - PYREXIA [None]
  - ACUTE LYMPHOCYTIC LEUKAEMIA [None]
  - PANCYTOPENIA [None]
  - BLAST CELL CRISIS [None]
  - DRUG INEFFECTIVE [None]
  - GRANULOCYTOPENIA [None]
  - ANAEMIA [None]
  - UPPER RESPIRATORY TRACT INFECTION [None]
